FAERS Safety Report 13512639 (Version 1)
Quarter: 2017Q2

REPORT INFORMATION
  Report Type: Spontaneous
  Country: US (occurrence: US)
  Receive Date: 20170504
  Receipt Date: 20170504
  Transmission Date: 20170830
  Serious: No
  Sender: FDA-Public Use
  Company Number: US-B.I. PHARMACEUTICALS,INC./RIDGEFIELD-2017-BI-024506

PATIENT
  Age: 50 Year
  Sex: Female

DRUGS (1)
  1. SPIRIVA [Suspect]
     Active Substance: TIOTROPIUM BROMIDE MONOHYDRATE
     Indication: CHRONIC OBSTRUCTIVE PULMONARY DISEASE
     Dosage: 1 CAPSULE DAILY;  FORM STRENGTH: 18 MCG; FORMULATION: CAPSULE? ADMINISTRATION CORRECT? YES ?ACTION(S
     Route: 048
     Dates: start: 2013

REACTIONS (6)
  - Impaired work ability [Not Recovered/Not Resolved]
  - Gait disturbance [Not Recovered/Not Resolved]
  - Judgement impaired [Unknown]
  - Viral upper respiratory tract infection [Recovered/Resolved]
  - Viral infection [Recovered/Resolved]
  - Pneumonia [Recovered/Resolved]

NARRATIVE: CASE EVENT DATE: 201309
